FAERS Safety Report 7052284-1 (Version None)
Quarter: 2010Q4

REPORT INFORMATION
  Report Type: 
  Country: None (occurrence: None)
  Receive Date: 20101014
  Receipt Date: 20100927
  Transmission Date: 20110411
  Serious: Yes (Hospitalization)
  Sender: FDA-Public Use
  Company Number: TPA2010A05156

PATIENT
  Age: 68 Year
  Sex: Male
  Weight: 104.3273 kg

DRUGS (1)
  1. ACTOS [Suspect]
     Indication: TYPE 2 DIABETES MELLITUS
     Dosage: 45 MG, 1 IN 1 D, PER ORAL
     Route: 048
     Dates: start: 19970101, end: 20100428

REACTIONS (5)
  - DYSPNOEA [None]
  - HEART RATE DECREASED [None]
  - MYOCARDIAL INFARCTION [None]
  - SWELLING [None]
  - WEIGHT INCREASED [None]
